FAERS Safety Report 24556589 (Version 4)
Quarter: 2024Q4

REPORT INFORMATION
  Report Type: Report from Study
  Country: ES (occurrence: ES)
  Receive Date: 20241028
  Receipt Date: 20241230
  Transmission Date: 20250115
  Serious: Yes (Hospitalization, Other)
  Sender: ABBVIE
  Company Number: ES-ABBVIE-5759725

PATIENT
  Age: 76 Year
  Sex: Male
  Weight: 63 kg

DRUGS (6)
  1. CARBIDOPA\LEVODOPA [Suspect]
     Active Substance: CARBIDOPA\LEVODOPA
     Indication: Parkinson^s disease
     Dosage: 240 MG/ML + 12 MG/ML SOLUCION PARA PERFUSION?LAST DOSE ADMINISTERED 2024
     Route: 058
     Dates: start: 20240215
  2. CARBIDOPA\LEVODOPA [Suspect]
     Active Substance: CARBIDOPA\LEVODOPA
     Dosage: DOSE INCREASED, 240 MG/ML + 12 MG/ML SOLUCION PARA PERFUSION
     Route: 058
     Dates: start: 2024
  3. deprax [Concomitant]
     Indication: Product used for unknown indication
     Route: 048
     Dates: start: 20240925
  4. QUETIAPINE [Concomitant]
     Active Substance: QUETIAPINE
     Indication: Product used for unknown indication
     Route: 048
     Dates: start: 20240925
  5. TRAZODONE [Concomitant]
     Active Substance: TRAZODONE HYDROCHLORIDE
     Indication: Product used for unknown indication
     Dosage: DOSE-1/2-1/2
     Route: 048
  6. QUETIAPINE [Concomitant]
     Active Substance: QUETIAPINE
     Indication: Product used for unknown indication
     Dosage: FREQUENCY: IF NECESSARY

REACTIONS (20)
  - Localised infection [Recovering/Resolving]
  - Nodule [Recovering/Resolving]
  - Abscess [Not Recovered/Not Resolved]
  - Infusion site nodule [Not Recovered/Not Resolved]
  - Fatigue [Not Recovered/Not Resolved]
  - Screaming [Not Recovered/Not Resolved]
  - Freezing phenomenon [Not Recovered/Not Resolved]
  - Anger [Not Recovered/Not Resolved]
  - Hypoaesthesia [Not Recovered/Not Resolved]
  - Freezing phenomenon [Not Recovered/Not Resolved]
  - Insomnia [Not Recovered/Not Resolved]
  - On and off phenomenon [Unknown]
  - Infection [Unknown]
  - Gait disturbance [Not Recovered/Not Resolved]
  - Catheter site nodule [Recovering/Resolving]
  - Therapeutic product effect incomplete [Unknown]
  - Catheter site infection [Recovering/Resolving]
  - Abscess [Unknown]
  - Localised infection [Recovering/Resolving]
  - Nodule [Recovered/Resolved]

NARRATIVE: CASE EVENT DATE: 20240101
